FAERS Safety Report 8769553 (Version 1)
Quarter: 2012Q4

REPORT INFORMATION
  Report Type: 
  Country: US (occurrence: US)
  Receive Date: 20120904
  Receipt Date: 20120904
  Transmission Date: 20130627
  Serious: No
  Sender: FDA-Public Use
  Company Number: US-PFIZER INC-2012215773

PATIENT
  Age: 83 Year
  Sex: Female

DRUGS (4)
  1. VICODIN [Suspect]
     Dosage: UNK
  2. MORPHINE SULFATE [Suspect]
     Dosage: UNK
  3. DARVOCET A500 [Suspect]
     Dosage: UNK
  4. PERCOCET [Suspect]
     Dosage: UNK

REACTIONS (3)
  - Drug hypersensitivity [Unknown]
  - Nausea [Unknown]
  - Vomiting [Unknown]
